FAERS Safety Report 6533069-9 (Version None)
Quarter: 2010Q1

REPORT INFORMATION
  Report Type: 
  Country: None (occurrence: None)
  Receive Date: 20100105
  Receipt Date: 20091221
  Transmission Date: 20100710
  Serious: Yes (Hospitalization)
  Sender: FDA-Public Use
  Company Number: 2009US000053

PATIENT
  Age: 69 Year
  Sex: Female

DRUGS (5)
  1. ENTEREG [Suspect]
     Indication: POSTOPERATIVE ILEUS
     Dosage: 12 MG; PO
     Route: 048
     Dates: start: 20091104
  2. INSULIN [Concomitant]
  3. LIPITOR [Concomitant]
  4. CARDIAZEM [Concomitant]
  5. LASIX [Concomitant]

REACTIONS (1)
  - CARDIAC FAILURE CONGESTIVE [None]
